FAERS Safety Report 18436986 (Version 1)
Quarter: 2020Q4

REPORT INFORMATION
  Report Type: Spontaneous
  Country: US (occurrence: US)
  Receive Date: 20201028
  Receipt Date: 20201028
  Transmission Date: 20210114
  Serious: Yes (Life-Threatening, Hospitalization, Other)
  Sender: FDA-Public Use
  Company Number: US-PFIZER INC-2020415299

PATIENT
  Age: 11 Year
  Sex: Female

DRUGS (2)
  1. METHOTREXATE SODIUM. [Suspect]
     Active Substance: METHOTREXATE SODIUM
     Indication: NON-HODGKIN^S LYMPHOMA
     Dosage: 5000 MG, DAILY (5G MTX/24 HOURS)
  2. METHOTREXATE SODIUM. [Suspect]
     Active Substance: METHOTREXATE SODIUM
     Dosage: 1 MG/KG ( X SERUM CONCENTRATION;6 HOURS BEGINNING 36 HOURS)

REACTIONS (4)
  - Brain oedema [Unknown]
  - Coma [Unknown]
  - Epilepsy [Unknown]
  - Visual impairment [Unknown]
